FAERS Safety Report 6496664-1 (Version None)
Quarter: 2009Q4

REPORT INFORMATION
  Report Type: 
  Country: None (occurrence: None)
  Receive Date: 20091210
  Receipt Date: 20091127
  Transmission Date: 20100525
  Serious: Yes (Other)
  Sender: FDA-Public Use
  Company Number: 2009AL007591

PATIENT
  Age: 42 Year
  Sex: Male

DRUGS (1)
  1. CITALOPRAM HYDROBROMIDE [Suspect]
     Indication: DRUG USE FOR UNKNOWN INDICATION
     Dosage: 20 MG;QD;UNKNOWN
     Dates: start: 20091123

REACTIONS (5)
  - DRY MOUTH [None]
  - ERECTILE DYSFUNCTION [None]
  - LOSS OF LIBIDO [None]
  - MALAISE [None]
  - POOR QUALITY SLEEP [None]
